FAERS Safety Report 7190929-6 (Version None)
Quarter: 2010Q4

REPORT INFORMATION
  Report Type: 
  Country: None (occurrence: None)
  Receive Date: 20101223
  Receipt Date: 20101216
  Transmission Date: 20110411
  Serious: Yes (Other)
  Sender: FDA-Public Use
  Company Number: CA-TEVA-260715USA

PATIENT
  Age: 68 Year
  Sex: Male

DRUGS (6)
  1. METFORMIN HYDROCHLORIDE [Suspect]
     Route: 048
  2. BISOPROLOL FUMARATE [Concomitant]
  3. CLOPIDOGREL [Concomitant]
  4. ISOSORBIDE DINITRATE [Concomitant]
  5. LORAZEPAM [Concomitant]
  6. RANITIDINE [Concomitant]

REACTIONS (1)
  - ANGIOEDEMA [None]
